FAERS Safety Report 8152005-5 (Version None)
Quarter: 2012Q1

REPORT INFORMATION
  Report Type: 
  Country: None (occurrence: None)
  Receive Date: 20120221
  Receipt Date: 20120215
  Transmission Date: 20120608
  Serious: Yes (Other)
  Sender: FDA-Public Use
  Company Number: US-PFIZER INC-2012041412

PATIENT
  Sex: Male
  Weight: 63.492 kg

DRUGS (2)
  1. DILANTIN [Suspect]
     Indication: CONVULSION
     Dosage: 100 MG, 4X/DAY
     Route: 048
     Dates: start: 19770101
  2. ASPIRIN [Concomitant]
     Dosage: 81 MG, UNK

REACTIONS (2)
  - HEADACHE [None]
  - CONVULSION [None]
